FAERS Safety Report 11144158 (Version 1)
Quarter: 2015Q2

REPORT INFORMATION
  Report Type: Spontaneous
  Country: US (occurrence: None)
  Receive Date: 20150526
  Receipt Date: 20150526
  Transmission Date: 20150821
  Serious: No
  Sender: FDA-Public Use
  Company Number: None

PATIENT
  Age: 44 Year
  Sex: Female
  Weight: 49.9 kg

DRUGS (4)
  1. VSL 3 PROBIOTICS [Concomitant]
  2. MULTIVITAMINS [Concomitant]
     Active Substance: VITAMINS
  3. CANASA SUPPOSITORIES [Concomitant]
  4. REMICADE [Suspect]
     Active Substance: INFLIXIMAB
     Indication: COLITIS ULCERATIVE
     Route: 042

REACTIONS (2)
  - Alopecia [None]
  - Depression [None]

NARRATIVE: CASE EVENT DATE: 20150507
